FAERS Safety Report 10397728 (Version 9)
Quarter: 2020Q1

REPORT INFORMATION
  Report Type: Report from Study
  Country: US (occurrence: MX)
  Receive Date: 20140821
  Receipt Date: 20200323
  Transmission Date: 20200409
  Serious: Yes (Other)
  Sender: FDA-Public Use
  Company Number: MX-ROCHE-1410426

PATIENT
  Age: 20 Year
  Sex: Female
  Weight: 77.5 kg

DRUGS (7)
  1. METHOTREXATE. [Concomitant]
     Active Substance: METHOTREXATE
     Route: 065
     Dates: start: 2008
  2. ACETAMINOPHEN. [Concomitant]
     Active Substance: ACETAMINOPHEN
     Route: 065
     Dates: start: 20130416, end: 20130416
  3. FOLIC ACID. [Concomitant]
     Active Substance: FOLIC ACID
     Route: 065
     Dates: start: 2008
  4. METHYLPREDNISOLONE. [Concomitant]
     Active Substance: METHYLPREDNISOLONE
     Route: 065
     Dates: start: 20130416, end: 20130416
  5. PREDNISONE. [Concomitant]
     Active Substance: PREDNISONE
     Route: 065
     Dates: start: 2012
  6. DICLOFENAC [Concomitant]
     Active Substance: DICLOFENAC
     Route: 065
     Dates: start: 2008
  7. RITUXIMAB. [Suspect]
     Active Substance: RITUXIMAB
     Indication: RHEUMATOID ARTHRITIS
     Route: 042
     Dates: start: 20130416, end: 20130416

REACTIONS (1)
  - Thrombocytopenic purpura [Recovered/Resolved]

NARRATIVE: CASE EVENT DATE: 20130428
